FAERS Safety Report 6228686-X (Version None)
Quarter: 2009Q2

REPORT INFORMATION
  Report Type: 
  Country: None (occurrence: None)
  Receive Date: 20090615
  Receipt Date: 20090611
  Transmission Date: 20091009
  Serious: Yes (Other)
  Sender: FDA-Public Use
  Company Number: JP-BAYER-200922389GPV

PATIENT
  Age: 43 Year
  Sex: Female

DRUGS (3)
  1. INTERFERON BETA 1B [Suspect]
     Indication: MULTIPLE SCLEROSIS
     Dates: start: 20060711, end: 20060726
  2. METHYLPREDNISOLONE [Suspect]
     Indication: ATAXIA
     Dosage: PULSED
     Dates: start: 20060705, end: 20060707
  3. METHYLPREDNISOLONE [Suspect]
     Dosage: PULSED
     Dates: start: 20071001, end: 20071003

REACTIONS (2)
  - AUTOIMMUNE HEPATITIS [None]
  - HEPATITIS [None]
